FAERS Safety Report 25617602 (Version 2)
Quarter: 2025Q3

REPORT INFORMATION
  Report Type: Report from Study
  Country: US (occurrence: US)
  Receive Date: 20250729
  Receipt Date: 20250929
  Transmission Date: 20251020
  Serious: Yes (Hospitalization)
  Sender: STEMLINE THERAPEUTICS
  Company Number: US-STEMLINE THERAPEUTICS B.V.-2025-STML-US000982

PATIENT

DRUGS (4)
  1. ORSERDU [Suspect]
     Active Substance: ELACESTRANT
     Indication: Breast cancer female
     Route: 065
     Dates: start: 20241103, end: 20250317
  2. ORSERDU [Suspect]
     Active Substance: ELACESTRANT
     Indication: Bone cancer
     Dosage: UNK, DAILY
     Route: 065
     Dates: start: 20250514
  3. ORSERDU [Suspect]
     Active Substance: ELACESTRANT
     Route: 048
     Dates: start: 20250724
  4. ORSERDU [Suspect]
     Active Substance: ELACESTRANT
     Dosage: 345 MG, DAILY
     Route: 048
     Dates: end: 20250919

REACTIONS (3)
  - Renal disorder [Recovered/Resolved]
  - Malignant neoplasm progression [Unknown]
  - Intentional dose omission [Unknown]

NARRATIVE: CASE EVENT DATE: 20250701
